FAERS Safety Report 8791381 (Version 1)
Quarter: 2012Q4

REPORT INFORMATION
  Report Type: Spontaneous
  Country: US (occurrence: None)
  Receive Date: 20120912
  Receipt Date: 20120912
  Transmission Date: 20130627
  Serious: Yes (Hospitalization, Other)
  Sender: FDA-Public Use
  Company Number: AUR-APL-2012-03909

PATIENT
  Age: 23 Year
  Sex: Male

DRUGS (2)
  1. LAMOTRIGINE (LAMOTRIGINE) [Suspect]
     Indication: DRUG USE FOR UNKNOWN INDICATION
     Route: 048
  2. FLUDROCORTISONE [Suspect]

REACTIONS (14)
  - Toxicity to various agents [None]
  - Convulsion [None]
  - Electrocardiogram QRS complex prolonged [None]
  - Circulatory collapse [None]
  - Tremor [None]
  - Foaming at mouth [None]
  - Agitation [None]
  - Blood pressure increased [None]
  - Delirium [None]
  - Myoclonus [None]
  - Restlessness [None]
  - Confusional state [None]
  - Hyperthermia [None]
  - Tachycardia [None]
